FAERS Safety Report 24169856 (Version 1)
Quarter: 2024Q3

REPORT INFORMATION
  Report Type: Spontaneous
  Country: FR (occurrence: FR)
  Receive Date: 20240803
  Receipt Date: 20240803
  Transmission Date: 20241016
  Serious: Yes (Hospitalization, Other)
  Sender: AUROBINDO
  Company Number: FR-AFSSAPS-BS2024000457

PATIENT
  Age: 87 Year
  Sex: Male
  Weight: 98 kg

DRUGS (2)
  1. CITALOPRAM HYDROBROMIDE [Suspect]
     Active Substance: CITALOPRAM HYDROBROMIDE
     Indication: Dyspnoea
     Dosage: 20 MILLIGRAM, ONCE A DAY
     Route: 048
  2. ELIQUIS [Suspect]
     Active Substance: APIXABAN
     Indication: Atrial fibrillation
     Dosage: 2.5 MILLIGRAM
     Route: 048
     Dates: end: 20240425

REACTIONS (2)
  - Blood loss anaemia [Recovering/Resolving]
  - Haematemesis [Recovered/Resolved]

NARRATIVE: CASE EVENT DATE: 20240425
